FAERS Safety Report 21841550 (Version 4)
Quarter: 2023Q2

REPORT INFORMATION
  Report Type: Report from Study
  Country: CA (occurrence: CA)
  Receive Date: 20230110
  Receipt Date: 20230529
  Transmission Date: 20230721
  Serious: Yes (Hospitalization, Other)
  Sender: FDA-Public Use
  Company Number: CA-TAKEDA-2023TUS001755

PATIENT
  Age: 64 Year
  Sex: Male

DRUGS (15)
  1. VEDOLIZUMAB [Suspect]
     Active Substance: VEDOLIZUMAB
     Indication: Crohn^s disease
     Dosage: 300 MILLIGRAM
     Route: 042
     Dates: start: 20221224
  2. VEDOLIZUMAB [Suspect]
     Active Substance: VEDOLIZUMAB
     Dosage: 300 MILLIGRAM
     Route: 042
  3. VEDOLIZUMAB [Suspect]
     Active Substance: VEDOLIZUMAB
     Dosage: 300 MILLIGRAM
     Route: 042
  4. PHENYTOIN SODIUM [Concomitant]
     Active Substance: PHENYTOIN SODIUM
     Dosage: 100  MILLIGRAM
     Route: 048
  5. FERROUS SULFATE [Concomitant]
     Active Substance: FERROUS SULFATE
     Dosage: 300  MILLIGRAM
     Route: 048
  6. VITAMIN D [Concomitant]
     Active Substance: VITAMIN D NOS
     Dosage: UNK
     Route: 048
  7. VITAMIN B12 [Concomitant]
     Active Substance: CYANOCOBALAMIN
     Dosage: 1000 MICROGRAM
     Route: 048
  8. MAGNESIUM OXIDE [Concomitant]
     Active Substance: MAGNESIUM OXIDE
     Dosage: 420 MILLIGRAM
     Route: 048
  9. CALCIUM CARBONATE [Concomitant]
     Active Substance: CALCIUM CARBONATE
     Dosage: 500 MILLIGRAM
     Route: 048
  10. ZOPICLONE [Concomitant]
     Active Substance: ZOPICLONE
     Dosage: 2.5 MILLIGRAM
     Route: 048
  11. ASPIRIN [Concomitant]
     Active Substance: ASPIRIN
     Dosage: 81 MILLIGRAM
     Route: 048
  12. TAMSULOSIN [Concomitant]
     Active Substance: TAMSULOSIN
     Dosage: 0.4 MILLIGRAM
     Route: 048
  13. VITAMIN B COMPLEX [Concomitant]
     Active Substance: CYANOCOBALAMIN\DEXPANTHENOL\NIACINAMIDE\PYRIDOXINE HYDROCHLORIDE\RIBOFLAVIN 5^-PHOSPHATE SODIUM\THIA
     Dosage: UNK
     Route: 048
  14. PREDNISONE [Concomitant]
     Active Substance: PREDNISONE
     Dosage: 5 MILLIGRAM
     Route: 048
  15. ENTOCORT [Concomitant]
     Active Substance: BUDESONIDE
     Dosage: 3 MILLIGRAM
     Route: 048

REACTIONS (7)
  - Rectal haemorrhage [Recovering/Resolving]
  - Crohn^s disease [Recovering/Resolving]
  - Hip fracture [Recovering/Resolving]
  - Blood urine present [Recovering/Resolving]
  - Postoperative wound infection [Not Recovered/Not Resolved]
  - Defaecation urgency [Not Recovered/Not Resolved]
  - Diarrhoea [Unknown]

NARRATIVE: CASE EVENT DATE: 20230320
